FAERS Safety Report 4625610-8 (Version None)
Quarter: 2005Q1

REPORT INFORMATION
  Report Type: 
  Country: None (occurrence: None)
  Receive Date: 20050330
  Receipt Date: 20050228
  Transmission Date: 20050727
  Serious: Yes (Life-Threatening)
  Sender: FDA-Public Use
  Company Number: 10625

PATIENT
  Age: 56 Year
  Sex: Male

DRUGS (6)
  1. PACLITAXEL [Suspect]
     Indication: SMALL CELL LUNG CANCER STAGE UNSPECIFIED
     Dosage: IV
     Route: 042
     Dates: start: 20050223, end: 20050223
  2. OXEPAM [Concomitant]
  3. ALPROSTADIL [Concomitant]
  4. TENOX [Concomitant]
  5. IBUXIN [Concomitant]
  6. PANACOD [Concomitant]

REACTIONS (4)
  - ANXIETY [None]
  - CHEST PAIN [None]
  - COUGH [None]
  - MUSCLE SPASMS [None]
